FAERS Safety Report 4638253-7 (Version None)
Quarter: 2005Q2

REPORT INFORMATION
  Report Type: 
  Country: None (occurrence: None)
  Receive Date: 20050418
  Receipt Date: 20050328
  Transmission Date: 20051028
  Serious: Yes (Other)
  Sender: FDA-Public Use
  Company Number: US_0503114726

PATIENT

DRUGS (1)
  1. HUMATROPE [Suspect]

REACTIONS (1)
  - NO ADVERSE EFFECT [None]
